FAERS Safety Report 22008819 (Version 1)
Quarter: 2023Q1

REPORT INFORMATION
  Report Type: Spontaneous
  Country: CN (occurrence: CN)
  Receive Date: 20230219
  Receipt Date: 20230219
  Transmission Date: 20230418
  Serious: Yes (Death, Life-Threatening, Hospitalization, Other)
  Sender: FDA-Public Use
  Company Number: CN-BAYER-2023A016980

PATIENT
  Age: 30 Year
  Sex: Female

DRUGS (1)
  1. XARELTO [Suspect]
     Active Substance: RIVAROXABAN
     Indication: Product used for unknown indication
     Dosage: UNK
     Route: 048
     Dates: start: 2017

REACTIONS (18)
  - Ill-defined disorder [Fatal]
  - Full blood count decreased [Unknown]
  - Heart rate increased [Unknown]
  - Antiphospholipid syndrome [Unknown]
  - Amnesia [Unknown]
  - Suicidal ideation [Unknown]
  - Pyrexia [Unknown]
  - Asthenia [Unknown]
  - Platelet count decreased [Unknown]
  - Epistaxis [Unknown]
  - Inflammation [Unknown]
  - Blindness [Unknown]
  - Toothache [Unknown]
  - Ear pain [Unknown]
  - Headache [Unknown]
  - Eye swelling [Unknown]
  - Slow response to stimuli [Unknown]
  - Depressed mood [Unknown]

NARRATIVE: CASE EVENT DATE: 20170101
